FAERS Safety Report 15272214 (Version 2)
Quarter: 2021Q3

REPORT INFORMATION
  Report Type: Report from Study
  Country: GB (occurrence: GB)
  Receive Date: 20180813
  Receipt Date: 20210715
  Transmission Date: 20211014
  Serious: Yes (Other)
  Sender: FDA-Public Use
  Company Number: GB-JAZZ-2018-GB-011931

PATIENT
  Age: 42 Year
  Sex: Male

DRUGS (7)
  1. CPX?351 [Suspect]
     Active Substance: CYTARABINE\DAUNORUBICIN
     Dosage: 65 ?G/M2, SINGLE
     Route: 042
     Dates: start: 20180713, end: 20180713
  2. ARA?C [Suspect]
     Active Substance: CYTARABINE
  3. G?CSF [Suspect]
     Active Substance: GRANULOCYTE COLONY-STIMULATING FACTOR NOS
  4. MYLOTARG                           /01278901/ [Suspect]
     Active Substance: LEVOFLOXACIN
     Dosage: 5 MG/M2, UNK
     Route: 042
     Dates: start: 20180529, end: 20180529
  5. IDARUBICIN [Suspect]
     Active Substance: IDARUBICIN
     Dosage: UNK
     Dates: start: 20180531, end: 20180602
  6. CPX?351 [Suspect]
     Active Substance: CYTARABINE\DAUNORUBICIN
     Indication: ACUTE MYELOID LEUKAEMIA
     Dosage: 100 ?G/M2, SINGLE
     Route: 042
     Dates: start: 20180709, end: 20180711
  7. FLUDARABINE [Suspect]
     Active Substance: FLUDARABINE PHOSPHATE
     Dosage: UNK
     Dates: start: 20180529, end: 20180602

REACTIONS (1)
  - Gamma-glutamyltransferase increased [Recovered/Resolved]

NARRATIVE: CASE EVENT DATE: 20180730
